FAERS Safety Report 6061493-X (Version None)
Quarter: 2009Q1

REPORT INFORMATION
  Report Type: 
  Country: None (occurrence: None)
  Receive Date: 20090202
  Receipt Date: 20090121
  Transmission Date: 20090719
  Serious: Yes (Hospitalization)
  Sender: FDA-Public Use
  Company Number: GB-ROCHE-451021

PATIENT
  Sex: Female
  Weight: 67 kg

DRUGS (15)
  1. CAPECITABINE [Suspect]
     Indication: COLON CANCER
     Dosage: DAYS ONE TO FOURTEEN EVERY THREE WEEKS, AS PER PROTOCOL
     Route: 048
     Dates: start: 20060403
  2. THYROXINE [Concomitant]
     Route: 048
     Dates: start: 20060607, end: 20060607
  3. CYCLIZINE [Concomitant]
     Route: 048
     Dates: start: 20060607, end: 20060607
  4. GELOFUSIN [Concomitant]
     Route: 042
     Dates: start: 20060605, end: 20060606
  5. ENSURE PLUS [Concomitant]
     Route: 048
     Dates: start: 20060608, end: 20060620
  6. CALOGEN [Concomitant]
     Route: 048
     Dates: start: 20060608, end: 20060613
  7. FUROSEMIDE [Concomitant]
     Route: 048
     Dates: start: 20060616, end: 20060620
  8. FLUCLOXACILLIN [Concomitant]
     Dates: start: 20060615, end: 20060620
  9. NORMAL SALINE/POTASSIUM [Concomitant]
     Route: 042
     Dates: start: 20060613
  10. DEXTROSE/POTASSIUM CHLORIDE [Concomitant]
     Route: 042
     Dates: start: 20060616
  11. LOPERAMIDE HCL [Concomitant]
     Route: 048
     Dates: start: 20060603, end: 20060615
  12. CO-TENIDONE [Concomitant]
     Route: 048
     Dates: start: 20060604, end: 20060615
  13. METOCLOPRAMIDE [Concomitant]
     Route: 048
     Dates: start: 20060604, end: 20060615
  14. FRAGMIN [Concomitant]
     Route: 058
     Dates: start: 20060604, end: 20060615
  15. SALBUTAMOL [Concomitant]
     Dates: start: 20060607, end: 20060615

REACTIONS (2)
  - DEHYDRATION [None]
  - SMALL INTESTINAL STENOSIS [None]
